FAERS Safety Report 6137395-7 (Version None)
Quarter: 2009Q1

REPORT INFORMATION
  Report Type: 
  Country: None (occurrence: None)
  Receive Date: 20090330
  Receipt Date: 20090323
  Transmission Date: 20090719
  Serious: Yes (Life-Threatening, Hospitalization)
  Sender: FDA-Public Use
  Company Number: GR-ABBOTT-09P-066-0564196-00

PATIENT
  Age: 78 Year
  Sex: Male

DRUGS (1)
  1. DARONDA DEPOT INJECTION [Suspect]
     Indication: PROSTATE CANCER
     Route: 058
     Dates: start: 20080101

REACTIONS (3)
  - BLOOD PRESSURE DECREASED [None]
  - HYPERHIDROSIS [None]
  - RESPIRATORY DISTRESS [None]
